FAERS Safety Report 21975107 (Version 1)
Quarter: 2023Q1

REPORT INFORMATION
  Report Type: Report from Study
  Country: US (occurrence: US)
  Receive Date: 20230209
  Receipt Date: 20230209
  Transmission Date: 20230417
  Serious: Yes (Death, Life-Threatening, Hospitalization)
  Sender: FDA-Public Use
  Company Number: US-ACTELION-A-US2019-199736

PATIENT
  Age: 30 Year
  Sex: Female
  Weight: 95.692 kg

DRUGS (5)
  1. VELETRI [Suspect]
     Active Substance: EPOPROSTENOL
     Indication: Pulmonary arterial hypertension
     Dosage: 32 NG/KG, PER MIN
     Route: 042
     Dates: end: 20200304
  2. VELETRI [Suspect]
     Active Substance: EPOPROSTENOL
     Dosage: 30 NG/KG, PER MIN
     Route: 042
  3. TADALAFIL [Suspect]
     Active Substance: TADALAFIL
     Indication: Product used for unknown indication
     Dosage: 40 MG, QD
     Route: 065
  4. LASIX [Concomitant]
     Active Substance: FUROSEMIDE
     Dosage: 40 UNK, QD
  5. PEPCID [Concomitant]
     Active Substance: FAMOTIDINE
     Dosage: 20 UNK, QD

REACTIONS (21)
  - Maternal death [Fatal]
  - Disseminated intravascular coagulation [Fatal]
  - Caesarean section [Unknown]
  - Premature delivery [Unknown]
  - Foetal distress syndrome [Unknown]
  - Exposure during pregnancy [Unknown]
  - Hospitalisation [Not Recovered/Not Resolved]
  - Heart rate decreased [Unknown]
  - Gastrointestinal haemorrhage [Unknown]
  - Drug therapy [Unknown]
  - Vaginal haemorrhage [Recovered/Resolved]
  - Rash [Unknown]
  - Dehydration [Unknown]
  - Nausea [Unknown]
  - Pneumonia [Unknown]
  - Diarrhoea [Unknown]
  - Illness [Unknown]
  - Dyspnoea [Unknown]
  - Morning sickness [Unknown]
  - Hypotension [Unknown]
  - Tachycardia [Unknown]

NARRATIVE: CASE EVENT DATE: 20200120
